FAERS Safety Report 18136212 (Version 2)
Quarter: 2020Q3

REPORT INFORMATION
  Report Type: Report from Study
  Country: EG (occurrence: EG)
  Receive Date: 20200811
  Receipt Date: 20200818
  Transmission Date: 20201103
  Serious: Yes (Death)
  Sender: FDA-Public Use
  Company Number: NVSC2020EG222211

PATIENT
  Age: 63 Year
  Sex: Male

DRUGS (1)
  1. ENTRESTO [Suspect]
     Active Substance: SACUBITRIL\VALSARTAN
     Indication: CARDIAC FAILURE
     Dosage: 1 DF, BID
     Route: 065
     Dates: start: 20190101

REACTIONS (4)
  - Cardiac failure [Fatal]
  - Ejection fraction decreased [Unknown]
  - Dizziness [Recovered/Resolved]
  - Cardiomyopathy [Fatal]

NARRATIVE: CASE EVENT DATE: 20200729
